FAERS Safety Report 5722803-3 (Version None)
Quarter: 2008Q2

REPORT INFORMATION
  Report Type: 
  Country: None (occurrence: None)
  Receive Date: 20080429
  Receipt Date: 20080108
  Transmission Date: 20081010
  Serious: No
  Sender: FDA-Public Use
  Company Number: US-ASTRAZENECA-2008UW00538

PATIENT
  Age: 78 Year
  Sex: Male
  Weight: 81.6 kg

DRUGS (4)
  1. NEXIUM [Suspect]
     Indication: HAEMATOCHEZIA
     Route: 048
     Dates: start: 20070101
  2. NEXIUM [Suspect]
     Indication: DYSPEPSIA
     Route: 048
     Dates: start: 20070101
  3. NEXIUM [Suspect]
     Indication: ERUCTATION
     Route: 048
     Dates: start: 20070101
  4. SEREVENT [Concomitant]

REACTIONS (1)
  - BLOOD PRESSURE INCREASED [None]
